APPROVED DRUG PRODUCT: PREDNISONE
Active Ingredient: PREDNISONE
Strength: 25MG
Dosage Form/Route: TABLET;ORAL
Application: A087833 | Product #001
Applicant: ROXANE LABORATORIES INC
Approved: May 4, 1982 | RLD: Yes | RS: No | Type: DISCN